FAERS Safety Report 14902262 (Version 2)
Quarter: 2018Q2

REPORT INFORMATION
  Report Type: Spontaneous
  Country: US (occurrence: US)
  Receive Date: 20180516
  Receipt Date: 20180611
  Transmission Date: 20180711
  Serious: Yes (Death, Other)
  Sender: FDA-Public Use
  Company Number: US-IMPAX LABORATORIES, INC-2018-IPXL-01618

PATIENT
  Age: 88 Year
  Sex: Female

DRUGS (2)
  1. CARBIDOPA-LEVODOPA ER [Suspect]
     Active Substance: CARBIDOPA\LEVODOPA
     Dosage: 25/250 MG, 3 DOSES, UNK
     Route: 065
  2. CARBIDOPA-LEVODOPA ER [Suspect]
     Active Substance: CARBIDOPA\LEVODOPA
     Indication: PARKINSON^S DISEASE
     Dosage: 50/500 MG, UNK, FEEDING TUBE
     Route: 065

REACTIONS (6)
  - Cardiac failure [Fatal]
  - Delirium [Unknown]
  - Somnolence [Unknown]
  - Dyskinesia [Unknown]
  - Atrial fibrillation [Unknown]
  - Agitation [Unknown]
